FAERS Safety Report 8018234-6 (Version None)
Quarter: 2012Q1

REPORT INFORMATION
  Report Type: 
  Country: None (occurrence: None)
  Receive Date: 20120103
  Receipt Date: 20111229
  Transmission Date: 20120608
  Serious: Yes (Other)
  Sender: FDA-Public Use
  Company Number: US-BAYER-2011-103485

PATIENT
  Age: 23 Year
  Sex: Female
  Weight: 86.848 kg

DRUGS (1)
  1. MIRENA [Suspect]
     Indication: CONTRACEPTION
     Dosage: 20 ?G/D, CONT
     Route: 015
     Dates: start: 20110824, end: 20111005

REACTIONS (3)
  - DEVICE COMPONENT ISSUE [None]
  - DEVICE DISLOCATION [None]
  - DEVICE EXPULSION [None]
